FAERS Safety Report 7536282-7 (Version None)
Quarter: 2011Q2

REPORT INFORMATION
  Report Type: 
  Country: None (occurrence: None)
  Receive Date: 20110608
  Receipt Date: 20110608
  Transmission Date: 20111010
  Serious: Yes (Other)
  Sender: FDA-Public Use
  Company Number: None

PATIENT
  Age: 84 Year
  Sex: Female
  Weight: 56.6996 kg

DRUGS (1)
  1. DOVONEX [Suspect]
     Indication: PSORIASIS
     Dosage: FEW SMALL SQUIRTS ONCE TOP
     Route: 061
     Dates: start: 20110604, end: 20110604

REACTIONS (3)
  - FEELING ABNORMAL [None]
  - TONGUE DISORDER [None]
  - ERYTHEMA [None]
